FAERS Safety Report 14584988 (Version 1)
Quarter: 2018Q1

REPORT INFORMATION
  Report Type: Report from Study
  Country: CA (occurrence: CA)
  Receive Date: 20180301
  Receipt Date: 20180301
  Transmission Date: 20180509
  Serious: Yes (Other)
  Sender: FDA-Public Use
  Company Number: CA-VISTAPHARM, INC.-VER201802-000438

PATIENT
  Age: 5 Year
  Sex: Female

DRUGS (1)
  1. VALPROIC ACID. [Suspect]
     Active Substance: VALPROIC ACID
     Indication: EPILEPSY

REACTIONS (3)
  - Ascites [Recovered/Resolved]
  - Pancreatitis [Recovered/Resolved]
  - Pleural effusion [Recovered/Resolved]
